FAERS Safety Report 9336437 (Version 4)
Quarter: 2013Q3

REPORT INFORMATION
  Report Type: Spontaneous
  Country: US (occurrence: US)
  Receive Date: 20130607
  Receipt Date: 20130712
  Transmission Date: 20140515
  Serious: Yes (Other)
  Sender: FDA-Public Use
  Company Number: US-009507513-1306USA001672

PATIENT
  Age: 52 Year
  Sex: Female
  Weight: 63.95 kg

DRUGS (6)
  1. REBETOL [Suspect]
     Indication: HEPATITIS C
     Dosage: UNK
     Route: 048
     Dates: start: 20130524
  2. VICTRELIS [Suspect]
     Indication: HEPATITIS C
     Dosage: UNK
     Route: 048
     Dates: start: 20130621, end: 20130623
  3. PEGASYS [Suspect]
     Indication: HEPATITIS C
     Dosage: 180 MICROGRAM / 0.5 ML INNJECTION, QW
     Dates: start: 20130524
  4. ALBUTEROL [Concomitant]
     Indication: HYPERSENSITIVITY
     Dosage: NEBULIZE, PRN
  5. LISINOPRIL [Concomitant]
     Indication: BLOOD PRESSURE
     Dosage: UNK
     Route: 048
  6. ACETAMINOPHEN (+) OXYCODONE HYDROCHLORIDE [Concomitant]
     Indication: PAIN
     Dosage: UNK, PRN
     Route: 048

REACTIONS (7)
  - Rash [Recovered/Resolved]
  - Vomiting [Recovered/Resolved]
  - Nausea [Recovered/Resolved]
  - Respiratory tract infection [Unknown]
  - Influenza like illness [Unknown]
  - Headache [Unknown]
  - Gastrointestinal disorder [Unknown]
